FAERS Safety Report 6730441-9 (Version None)
Quarter: 2010Q2

REPORT INFORMATION
  Report Type: 
  Country: None (occurrence: None)
  Receive Date: 20100518
  Receipt Date: 20100514
  Transmission Date: 20101027
  Serious: Yes (Other)
  Sender: FDA-Public Use
  Company Number: B0652860A

PATIENT
  Age: 44 Year
  Sex: Female

DRUGS (5)
  1. COMBIVIR [Suspect]
     Indication: HIV INFECTION
     Dosage: 2TAB PER DAY
     Route: 048
     Dates: start: 20040518, end: 20091103
  2. NORVIR [Suspect]
     Indication: HIV INFECTION
     Route: 048
     Dates: start: 20080930, end: 20100202
  3. CRESTOR [Concomitant]
     Route: 048
     Dates: start: 20080610
  4. TERCIAN [Concomitant]
     Route: 048
     Dates: start: 20070522
  5. REYATAZ [Concomitant]
     Indication: HIV INFECTION
     Route: 048
     Dates: start: 20090402, end: 20100202

REACTIONS (3)
  - CONDITION AGGRAVATED [None]
  - LIPODYSTROPHY ACQUIRED [None]
  - WEIGHT INCREASED [None]
